FAERS Safety Report 12759194 (Version 2)
Quarter: 2017Q1

REPORT INFORMATION
  Report Type: Report from Study
  Country: US (occurrence: US)
  Receive Date: 20160919
  Receipt Date: 20170127
  Transmission Date: 20170428
  Serious: No
  Sender: FDA-Public Use
  Company Number: PHEH2016US023570

PATIENT
  Sex: Female

DRUGS (2)
  1. ENTRESTO [Suspect]
     Active Substance: SACUBITRIL\VALSARTAN
     Indication: CARDIAC FAILURE
     Dosage: 50 MG, BID
     Route: 048
  2. ENTRESTO [Suspect]
     Active Substance: SACUBITRIL\VALSARTAN
     Dosage: SHE EITHER TAKES ONLY ONE TABLET PER DAY OR TAKES TWO AT NIGHT
     Route: 048

REACTIONS (5)
  - Inappropriate schedule of drug administration [Unknown]
  - Memory impairment [Unknown]
  - Pollakiuria [Unknown]
  - Dizziness postural [Unknown]
  - Cystitis [Unknown]
